FAERS Safety Report 20648618 (Version 1)
Quarter: 2022Q1

REPORT INFORMATION
  Report Type: Spontaneous
  Country: US (occurrence: US)
  Receive Date: 20220329
  Receipt Date: 20220329
  Transmission Date: 20220424
  Serious: No
  Sender: FDA-Public Use
  Company Number: US-GILEAD-2022-0575235

PATIENT
  Age: 74 Year
  Sex: Female
  Weight: 50.34 kg

DRUGS (2)
  1. AMBRISENTAN [Suspect]
     Active Substance: AMBRISENTAN
     Indication: Pulmonary arterial hypertension
     Dosage: UNK
     Route: 065
  2. REMODULIN [Suspect]
     Active Substance: TREPROSTINIL
     Indication: Pulmonary arterial hypertension
     Dosage: 0.050 UG/KG, CONTINUOUS
     Route: 058
     Dates: start: 20200730

REACTIONS (3)
  - Dyspnoea [Unknown]
  - Fatigue [Unknown]
  - Product use issue [Unknown]
